FAERS Safety Report 6864981-9 (Version None)
Quarter: 2010Q3

REPORT INFORMATION
  Report Type: 
  Country: None (occurrence: None)
  Receive Date: 20100721
  Receipt Date: 20080409
  Transmission Date: 20110219
  Serious: No
  Sender: FDA-Public Use
  Company Number: US-PFIZER INC-2008032385

PATIENT
  Sex: Female

DRUGS (1)
  1. CHANTIX [Suspect]
     Indication: SMOKING CESSATION THERAPY
     Route: 048
     Dates: start: 20080402

REACTIONS (6)
  - ABNORMAL DREAMS [None]
  - ANXIETY [None]
  - DYSGEUSIA [None]
  - FEELING JITTERY [None]
  - INSOMNIA [None]
  - NAUSEA [None]
